FAERS Safety Report 7645276-2 (Version None)
Quarter: 2011Q3

REPORT INFORMATION
  Report Type: 
  Country: None (occurrence: None)
  Receive Date: 20110729
  Receipt Date: 20110729
  Transmission Date: 20111222
  Serious: Yes (Other)
  Sender: FDA-Public Use
  Company Number: US-PFIZER INC-2011173032

PATIENT
  Sex: Female
  Weight: 56.689 kg

DRUGS (7)
  1. CHANTIX [Suspect]
     Indication: SMOKING CESSATION THERAPY
     Dosage: 0.5 MG, 1X/DAY
     Route: 048
     Dates: start: 20110716, end: 20110701
  2. DEPO-PROVERA [Concomitant]
     Indication: CONTRACEPTION
     Dosage: UNK
  3. ZOLOFT [Concomitant]
     Dosage: UNK
  4. XANAX [Concomitant]
     Indication: STRESS
     Dosage: UNK
  5. CLONAZEPAM [Concomitant]
     Indication: INSOMNIA
     Dosage: UNK, 1X/DAY
  6. KLONOPIN [Concomitant]
     Indication: INSOMNIA
     Dosage: UNK, 1X/DAY
  7. CHANTIX [Suspect]
     Dosage: 1 MG, 2X/DAY
     Route: 048
     Dates: start: 20110701, end: 20110724

REACTIONS (2)
  - STRESS [None]
  - ALOPECIA [None]
